FAERS Safety Report 8513359-0 (Version None)
Quarter: 2012Q3

REPORT INFORMATION
  Report Type: 
  Country: None (occurrence: None)
  Receive Date: 20120716
  Receipt Date: 20120711
  Transmission Date: 20120928
  Serious: Yes (Death, Hospitalization)
  Sender: FDA-Public Use
  Company Number: US-ASTRAZENECA-2012SE38769

PATIENT
  Age: 59 Year
  Sex: Male
  Weight: 104.3 kg

DRUGS (12)
  1. SEROQUEL XR [Suspect]
     Indication: ANXIETY
     Route: 048
     Dates: start: 20090101
  2. SEROQUEL XR [Suspect]
     Route: 048
     Dates: start: 20090101
  3. ADVAIR DISKUS 100/50 [Concomitant]
     Dosage: ONCE A DAY
     Route: 055
  4. SEROQUEL XR [Suspect]
     Indication: DEPRESSION
     Route: 048
     Dates: start: 20090101
  5. VENTOLIN [Concomitant]
     Dosage: PRN
  6. SEROQUEL XR [Suspect]
     Route: 048
     Dates: start: 20090101
  7. SEROQUEL XR [Suspect]
     Route: 048
     Dates: start: 20090101
  8. ALPRAZOLAM [Concomitant]
     Dosage: TWO TO THREE TABLETS A DAY
  9. OMEPRAZOLE [Suspect]
     Route: 048
  10. SEROQUEL XR [Suspect]
     Indication: PARANOIA
     Route: 048
     Dates: start: 20090101
  11. PAROXETINE [Concomitant]
  12. ALPRAZOLAM [Concomitant]

REACTIONS (4)
  - DEATH [None]
  - MALAISE [None]
  - ADVERSE EVENT [None]
  - GASTROOESOPHAGEAL REFLUX DISEASE [None]
